FAERS Safety Report 10685455 (Version 1)
Quarter: 2014Q4

REPORT INFORMATION
  Report Type: Spontaneous
  Country: US (occurrence: None)
  Receive Date: 20141229
  Receipt Date: 20141229
  Transmission Date: 20150529
  Serious: Yes (Hospitalization)
  Sender: FDA-Public Use
  Company Number: 2670404

PATIENT
  Age: 64 Year
  Sex: Female
  Weight: 79.4 kg

DRUGS (3)
  1. VANCOMYCIN HYDROCHLORIDE. [Suspect]
     Active Substance: VANCOMYCIN HYDROCHLORIDE
     Indication: DIALYSIS
     Dosage: 1 G GRAM (S), UNKNOWN, INTRAVENOUS DRIP
     Route: 041
     Dates: start: 20141119
  2. SODIUM CHLORIDE. [Suspect]
     Active Substance: SODIUM CHLORIDE
     Indication: DIALYSIS
     Route: 041
     Dates: start: 20141119, end: 20141119
  3. VANCOMYCIN HYDROCHLORIDE. [Suspect]
     Active Substance: VANCOMYCIN HYDROCHLORIDE
     Indication: CATHETER SITE INFECTION
     Dosage: 1 G GRAM (S), UNKNOWN, INTRAVENOUS DRIP
     Route: 041
     Dates: start: 20141119

REACTIONS (4)
  - Blood pressure systolic increased [None]
  - Dyspnoea [None]
  - Catheter site pruritus [None]
  - Catheter site erythema [None]

NARRATIVE: CASE EVENT DATE: 20141119
